FAERS Safety Report 9337840 (Version 1)
Quarter: 2013Q2

REPORT INFORMATION
  Report Type: Report from Study
  Country: US (occurrence: US)
  Receive Date: 20130607
  Receipt Date: 20130607
  Transmission Date: 20140414
  Serious: Yes (Other)
  Sender: FDA-Public Use
  Company Number: US-US-EMD SERONO, INC.-7215715

PATIENT
  Age: 47 Year
  Sex: Female

DRUGS (1)
  1. REBIF [Suspect]
     Indication: MULTIPLE SCLEROSIS
     Route: 058
     Dates: start: 20071018

REACTIONS (5)
  - Tendon rupture [Unknown]
  - Tendon injury [Unknown]
  - Contusion [Not Recovered/Not Resolved]
  - Vitamin D decreased [Unknown]
  - Multiple sclerosis relapse [Unknown]
